FAERS Safety Report 13199816 (Version 1)
Quarter: 2017Q1

REPORT INFORMATION
  Report Type: Report from Study
  Country: US (occurrence: US)
  Receive Date: 20170208
  Receipt Date: 20170208
  Transmission Date: 20170428
  Serious: Yes (Hospitalization)
  Sender: FDA-Public Use
  Company Number: US-ACTELION-A-US2017-148427

PATIENT
  Age: 72 Year
  Sex: Female
  Weight: 40.36 kg

DRUGS (3)
  1. TRACLEER [Suspect]
     Active Substance: BOSENTAN
     Indication: PULMONARY ARTERIAL HYPERTENSION
     Dosage: 62.5 MG, BID
     Route: 048
  2. VENTAVIS [Suspect]
     Active Substance: ILOPROST
     Indication: PULMONARY ARTERIAL HYPERTENSION
     Dosage: 5 MCG, 6-9X/DAY
     Route: 055
  3. VENTAVIS [Suspect]
     Active Substance: ILOPROST
     Dosage: 5 MCG, 6-9X/DAY
     Route: 055

REACTIONS (9)
  - Disease complication [Unknown]
  - Malaise [Unknown]
  - Chronic obstructive pulmonary disease [Unknown]
  - Fatigue [Unknown]
  - Pneumonia [Unknown]
  - Drug dose omission [Unknown]
  - Asthenia [Unknown]
  - Pulmonary hypertension [Unknown]
  - Dyspnoea [Unknown]
